FAERS Safety Report 18034897 (Version 2)
Quarter: 2020Q3

REPORT INFORMATION
  Report Type: Spontaneous
  Country: US (occurrence: US)
  Receive Date: 20200716
  Receipt Date: 20200831
  Transmission Date: 20201103
  Serious: No
  Sender: FDA-Public Use
  Company Number: US-AMGEN-USA-20200507129

PATIENT
  Age: 55 Year
  Sex: Female

DRUGS (8)
  1. TOPAMAX [Concomitant]
     Active Substance: TOPIRAMATE
     Dosage: 50 MILLIGRAM, BID
  2. VITAMIN D3 [Concomitant]
     Active Substance: CHOLECALCIFEROL
     Dosage: 200 UNIT
  3. OTEZLA [Suspect]
     Active Substance: APREMILAST
     Indication: PSORIATIC ARTHROPATHY
     Dosage: 30 MILLIGRAM, BID
     Route: 048
     Dates: start: 20191120
  4. OTEZLA [Suspect]
     Active Substance: APREMILAST
     Dosage: 30 MILLIGRAM, BID
     Route: 048
  5. VOLTAREN [Concomitant]
     Active Substance: DICLOFENAC SODIUM
     Dosage: UNK UNK, AS NECESSARY
     Route: 061
  6. ZANAFLEX [Concomitant]
     Active Substance: TIZANIDINE HYDROCHLORIDE
     Dosage: 4 MILLIGRAM, TID (PRN)
  7. CALCIUM + VITAMIN D [CALCIUM;COLECALCIFEROL] [Concomitant]
     Active Substance: CALCIUM\CHOLECALCIFEROL
  8. TOPIRAMATE. [Concomitant]
     Active Substance: TOPIRAMATE
     Dosage: 25 MILLIGRAM

REACTIONS (3)
  - Rash [Not Recovered/Not Resolved]
  - Diarrhoea [Not Recovered/Not Resolved]
  - Palpitations [Recovering/Resolving]

NARRATIVE: CASE EVENT DATE: 20200515
